FAERS Safety Report 4441330-7 (Version None)
Quarter: 2004Q3

REPORT INFORMATION
  Report Type: 
  Country: None (occurrence: None)
  Receive Date: 20040728
  Receipt Date: 20040326
  Transmission Date: 20050211
  Serious: No
  Sender: FDA-Public Use
  Company Number: USA040363331

PATIENT
  Sex: Female

DRUGS (3)
  1. STRATTERA [Suspect]
     Dosage: 40 MG DAY
     Dates: start: 20040322
  2. WELLBUTRIN [Concomitant]
  3. ESTROGEN NOS [Concomitant]

REACTIONS (5)
  - ANXIETY [None]
  - HEADACHE [None]
  - INSOMNIA [None]
  - MYDRIASIS [None]
  - NAUSEA [None]
